FAERS Safety Report 6023790-3 (Version None)
Quarter: 2008Q4

REPORT INFORMATION
  Report Type: 
  Country: None (occurrence: None)
  Receive Date: 20081223
  Receipt Date: 20081218
  Transmission Date: 20090506
  Serious: Yes (Death)
  Sender: FDA-Public Use
  Company Number: 2008JP005858

PATIENT
  Age: 49 Year
  Sex: Female

DRUGS (5)
  1. PROGRAF [Suspect]
     Indication: BONE MARROW TRANSPLANT
  2. METHOTREXATE FORMULATION UNKNOWN [Concomitant]
  3. INSULIN (INSULIN) FORMULATION UNKNOWN [Concomitant]
  4. FOSCARNET (FOSCARNET) FORMULATION UNKNOWN [Concomitant]
  5. HYPERALIMENTATION PREPARATIONS INJECTION [Concomitant]

REACTIONS (3)
  - BLOOD INSULIN DECREASED [None]
  - HEPATIC FAILURE [None]
  - PNEUMONIA CYTOMEGALOVIRAL [None]
